FAERS Safety Report 11171350 (Version 1)
Quarter: 2015Q2

REPORT INFORMATION
  Report Type: Spontaneous
  Country: US (occurrence: None)
  Receive Date: 20150515
  Receipt Date: 20150515
  Transmission Date: 20150821
  Serious: Yes (Other)
  Sender: FDA-Public Use
  Company Number: 2015003469

PATIENT
  Sex: Female
  Weight: 61.7 kg

DRUGS (11)
  1. NEUROTIN (ACETYLCARNITINE HYDROCHLORIDE) [Concomitant]
     Active Substance: ACETYLCARNITINE HYDROCHLORIDE
  2. TOPAMAX [Concomitant]
     Active Substance: TOPIRAMATE
  3. METHOTREXATE (METHOTREXATE) [Concomitant]
     Active Substance: METHOTREXATE
  4. CIMZIA [Suspect]
     Active Substance: CERTOLIZUMAB PEGOL
     Indication: PRODUCT USED FOR UNKNOWN INDICATION
  5. PROPRANOLOLL (PROPRANOLOL HYDROCHLORIDE) [Concomitant]
  6. PREDNISONE (PREDNISONE ACETATE) [Concomitant]
  7. SULFASALAZINE (SULFASALAZINE) [Concomitant]
     Active Substance: SULFASALAZINE
  8. KEPPRA [Concomitant]
     Active Substance: LEVETIRACETAM
  9. GABAPENTIN (GABAPENTIN) [Concomitant]
     Active Substance: GABAPENTIN
  10. HUMIRA [Suspect]
     Active Substance: ADALIMUMAB
     Indication: ANKYLOSING SPONDYLITIS
     Dosage: SOLUTION FOR INJECTION IN PRE-FILLED PEN
     Dates: start: 2012, end: 2012
  11. LAMICTAL [Concomitant]
     Active Substance: LAMOTRIGINE

REACTIONS (1)
  - Seizure [None]
